FAERS Safety Report 13220410 (Version 4)
Quarter: 2017Q1

REPORT INFORMATION
  Report Type: Spontaneous
  Country: TR (occurrence: TR)
  Receive Date: 20170210
  Receipt Date: 20170313
  Transmission Date: 20170428
  Serious: Yes (Hospitalization, Disabling, Other)
  Sender: FDA-Public Use
  Company Number: TR-BEH-2017077793

PATIENT
  Age: 74 Year
  Weight: 80 kg

DRUGS (11)
  1. ASPIRIN. [Concomitant]
     Active Substance: ASPIRIN
     Dosage: 100 DF, UNK
     Route: 065
  2. PREGABEN [Concomitant]
     Dosage: 150 DF, UNK
     Route: 065
  3. SANELOC [Concomitant]
     Active Substance: METOPROLOL
     Dosage: 50 DF, UNK
     Route: 065
  4. LIPITOR [Concomitant]
     Active Substance: ATORVASTATIN CALCIUM
     Dosage: 10 DF, UNK
     Route: 065
  5. PRIVIGEN [Suspect]
     Active Substance: HUMAN IMMUNOGLOBULIN G
     Indication: GUILLAIN-BARRE SYNDROME
     Dosage: 5 G, QD
     Route: 042
     Dates: start: 20161205, end: 20161209
  6. GLUKOFEN [Concomitant]
     Active Substance: METFORMIN HYDROCHLORIDE
     Dosage: 1000 DF, UNK
     Route: 065
  7. BEKUNIS                            /01251601/ [Concomitant]
     Route: 065
  8. EUTHYROX [Concomitant]
     Active Substance: LEVOTHYROXINE SODIUM
     Dosage: 50 ?G, UNK
     Route: 065
  9. LACIPIL [Concomitant]
     Active Substance: LACIDIPINE
     Route: 065
  10. FLOMAX [Concomitant]
     Active Substance: TAMSULOSIN HYDROCHLORIDE
     Route: 065
  11. PRIVIGEN [Suspect]
     Active Substance: HUMAN IMMUNOGLOBULIN G
     Dosage: 30 G, QD
     Route: 042
     Dates: start: 20161205, end: 20161209

REACTIONS (3)
  - Disability [Not Recovered/Not Resolved]
  - Asthenia [Not Recovered/Not Resolved]
  - Drug ineffective [Not Recovered/Not Resolved]

NARRATIVE: CASE EVENT DATE: 20161205
